FAERS Safety Report 14475794 (Version 3)
Quarter: 2018Q1

REPORT INFORMATION
  Report Type: Spontaneous
  Country: US (occurrence: US)
  Receive Date: 20180201
  Receipt Date: 20180314
  Transmission Date: 20180509
  Serious: Yes (Other)
  Sender: FDA-Public Use
  Company Number: US-GEHC-2018CSU000407

PATIENT
  Age: 23 Year
  Sex: Female
  Weight: 60.8 kg

DRUGS (5)
  1. FENTANYL. [Concomitant]
     Active Substance: FENTANYL
     Dosage: 175 MCG, UNK
     Route: 042
     Dates: start: 20180123, end: 20180123
  2. OMNIPAQUE [Suspect]
     Active Substance: IOHEXOL
     Indication: PRODUCT USED FOR UNKNOWN INDICATION
     Dosage: 30 ML, SINGLE
     Route: 042
     Dates: start: 20180123, end: 20180123
  3. MIDAZOLAM [Concomitant]
     Active Substance: MIDAZOLAM HYDROCHLORIDE
     Dosage: 3.5 MG, UNK
     Route: 042
     Dates: start: 20180123, end: 20180123
  4. OMNIPAQUE [Suspect]
     Active Substance: IOHEXOL
     Indication: PRODUCT USED FOR UNKNOWN INDICATION
     Dosage: 79 ML, SINGLE
     Route: 042
     Dates: start: 20180123, end: 20180123
  5. HEPARIN [Concomitant]
     Active Substance: HEPARIN SODIUM
     Dosage: UNK UNK, SINGLE
     Route: 065
     Dates: start: 20180123, end: 20180123

REACTIONS (6)
  - Chills [Not Recovered/Not Resolved]
  - Neck pain [Unknown]
  - Seizure [Not Recovered/Not Resolved]
  - Blood pressure increased [Unknown]
  - Heart rate increased [Unknown]
  - Gait disturbance [Unknown]

NARRATIVE: CASE EVENT DATE: 20180123
